FAERS Safety Report 12196095 (Version 1)
Quarter: 2016Q1

REPORT INFORMATION
  Report Type: Other
  Country: DE (occurrence: DE)
  Receive Date: 20160321
  Receipt Date: 20160321
  Transmission Date: 20160526
  Serious: Yes (Other)
  Sender: FDA-Public Use
  Company Number: DE-MYLANLABS-2016M1011492

PATIENT

DRUGS (5)
  1. FOLIO FORTE [Concomitant]
     Active Substance: FOLIC ACID\VITAMINS
     Indication: PROPHYLAXIS OF NEURAL TUBE DEFECT
     Dosage: 0.8 [MG/D (BIS 0.4) ]
     Route: 048
     Dates: start: 20150129, end: 20151003
  2. AZATHIOPRINE. [Suspect]
     Active Substance: AZATHIOPRINE
     Indication: CROHN^S DISEASE
     Dosage: 175 [MG/D ]
     Route: 048
     Dates: start: 20150129, end: 20151003
  3. NEOFOLLIN [Concomitant]
     Indication: ASSISTED FERTILISATION
     Dosage: 10 [MG/D ]/ UNKNOWN HOW OFTEN
     Route: 030
     Dates: start: 20150228, end: 20150403
  4. PROLUTON                           /00073201/ [Concomitant]
     Indication: ASSISTED FERTILISATION
     Dosage: 500 [MG/D ]/ UNKNOWN HOW OFTEN
     Route: 030
     Dates: start: 20150228, end: 20150403
  5. PROGESTAN [Concomitant]
     Active Substance: PROGESTERONE
     Indication: ASSISTED FERTILISATION
     Dosage: 600 [MG/D ]
     Route: 067
     Dates: start: 20150213, end: 20150403

REACTIONS (2)
  - Foetal death [Recovered/Resolved]
  - Exposure during pregnancy [Unknown]
